FAERS Safety Report 9583134 (Version 1)
Quarter: 2013Q4

REPORT INFORMATION
  Report Type: Spontaneous
  Country: US (occurrence: US)
  Receive Date: 20131002
  Receipt Date: 20131002
  Transmission Date: 20140711
  Serious: No
  Sender: FDA-Public Use
  Company Number: US-AMGEN-USASP2013045152

PATIENT
  Age: 57 Year
  Sex: Female

DRUGS (3)
  1. ENBREL [Suspect]
     Indication: RHEUMATOID ARTHRITIS
     Dosage: UNK UNK, Q2WK
     Route: 065
     Dates: start: 20120813
  2. ENBREL [Suspect]
     Indication: ANKYLOSING SPONDYLITIS
  3. PREDNISONE [Suspect]
     Dosage: UNK
     Dates: start: 201304

REACTIONS (10)
  - Dizziness [Not Recovered/Not Resolved]
  - Fall [Not Recovered/Not Resolved]
  - Syncope [Not Recovered/Not Resolved]
  - Ear neoplasm [Not Recovered/Not Resolved]
  - Arthralgia [Not Recovered/Not Resolved]
  - Hand deformity [Not Recovered/Not Resolved]
  - Neck pain [Recovered/Resolved]
  - Swelling [Unknown]
  - Weight increased [Not Recovered/Not Resolved]
  - Pain [Recovered/Resolved]
